FAERS Safety Report 5987252-1 (Version None)
Quarter: 2008Q4

REPORT INFORMATION
  Report Type: 
  Country: None (occurrence: None)
  Receive Date: 20081209
  Receipt Date: 20081202
  Transmission Date: 20090506
  Serious: Yes (Other)
  Sender: FDA-Public Use
  Company Number: GB-MERCK-0812GBR00017

PATIENT
  Age: 70 Year
  Sex: Male

DRUGS (2)
  1. PROSCAR [Suspect]
     Indication: PROSTATOMEGALY
     Route: 048
     Dates: start: 20081101
  2. [THERAPY UNSPECIFIED] [Concomitant]
     Route: 065

REACTIONS (2)
  - CONFUSIONAL STATE [None]
  - DEMENTIA [None]
